FAERS Safety Report 8663893 (Version 6)
Quarter: 2014Q4

REPORT INFORMATION
  Report Type: Report from Study
  Country: JP (occurrence: JP)
  Receive Date: 20120713
  Receipt Date: 20141024
  Transmission Date: 20150529
  Serious: Yes (Life-Threatening, Hospitalization, Other)
  Sender: FDA-Public Use
  Company Number: JP-AMGEN-JPNCT2012043051

PATIENT
  Age: 82 Year
  Sex: Male
  Weight: 47 kg

DRUGS (20)
  1. TAKEPRON [Concomitant]
     Active Substance: LANSOPRAZOLE
     Dosage: UNK
     Route: 048
  2. KIDMIN                             /07401301/ [Concomitant]
     Indication: GLOMERULONEPHRITIS CHRONIC
     Dosage: UNK
     Route: 041
  3. DIOVAN [Concomitant]
     Active Substance: VALSARTAN
     Dosage: UNK
     Route: 048
  4. LASIX [Concomitant]
     Active Substance: FUROSEMIDE
     Route: 042
  5. BAYASPIRIN [Concomitant]
     Active Substance: ASPIRIN
     Dosage: UNK
     Route: 048
  6. FERROUS SULFATE [Concomitant]
     Active Substance: FERROUS SULFATE\FERROUS SULFATE, DRIED
     Dosage: UNK
     Route: 048
  7. MUCOSTA [Concomitant]
     Active Substance: REBAMIPIDE
     Dosage: UNK
     Route: 048
  8. CALBLOCK [Concomitant]
     Active Substance: AZELNIDIPINE
     Dosage: UNK
     Route: 048
  9. ARGAMATE [Concomitant]
     Active Substance: POLYSTYRENE
     Dosage: UNK
     Route: 048
  10. OMEPRAL [Concomitant]
     Active Substance: OMEPRAZOLE
     Dosage: UNK
     Route: 048
  11. LIPOVATOL [Concomitant]
     Dosage: UNK
     Route: 048
  12. IRBETAN [Concomitant]
     Active Substance: IRBESARTAN
     Dosage: UNK
     Route: 048
     Dates: end: 20120810
  13. CALTAN [Concomitant]
     Active Substance: CALCIUM CARBONATE
     Indication: GLOMERULONEPHRITIS CHRONIC
     Dosage: UNK
     Route: 048
  14. THYRADIN S [Concomitant]
     Active Substance: LEVOTHYROXINE SODIUM
     Dosage: UNK
     Route: 048
  15. SENNAL [Concomitant]
     Dosage: UNK
     Route: 048
  16. DARBEPOETIN ALFA - KHK [Suspect]
     Active Substance: DARBEPOETIN ALFA
     Indication: NEPHROGENIC ANAEMIA
     Dosage: 120 MUG, Q4WK
     Route: 040
     Dates: start: 20110119, end: 20130822
  17. KAYEXALATE [Concomitant]
     Active Substance: SODIUM POLYSTYRENE SULFONATE
     Dosage: UNK
     Route: 048
  18. LASIX [Concomitant]
     Active Substance: FUROSEMIDE
     Indication: GLOMERULONEPHRITIS CHRONIC
     Dosage: UNK
     Route: 048
  19. PROMAC                             /01312301/ [Concomitant]
     Active Substance: NITROFURANTOIN
     Dosage: UNK
     Route: 048
  20. URIEF [Concomitant]
     Active Substance: SILODOSIN
     Dosage: UNK
     Route: 048

REACTIONS (11)
  - Blood pressure decreased [Recovered/Resolved]
  - Dehydration [Recovering/Resolving]
  - Anaemia macrocytic [Not Recovered/Not Resolved]
  - Hypothyroidism [Recovered/Resolved]
  - Acute myocardial infarction [Recovered/Resolved]
  - Collagen disorder [Unknown]
  - Cardiac failure [Not Recovered/Not Resolved]
  - Insomnia [Recovered/Resolved]
  - Blood potassium increased [Recovered/Resolved]
  - Renal impairment [Recovering/Resolving]
  - Hypoalbuminaemia [Not Recovered/Not Resolved]

NARRATIVE: CASE EVENT DATE: 20110727
